FAERS Safety Report 7304032-5 (Version None)
Quarter: 2011Q1

REPORT INFORMATION
  Report Type: 
  Country: None (occurrence: None)
  Receive Date: 20110221
  Receipt Date: 20110218
  Transmission Date: 20110831
  Serious: Yes (Death, Life-Threatening, Hospitalization, Other)
  Sender: FDA-Public Use
  Company Number: JP-ABBOTT-10P-087-0676065-00

PATIENT
  Sex: Female

DRUGS (12)
  1. PREDNISOLONE [Concomitant]
     Route: 048
     Dates: start: 20090101, end: 20090401
  2. BUCILLAMINE [Concomitant]
     Indication: RHEUMATOID ARTHRITIS
     Route: 048
     Dates: start: 20080101, end: 20080201
  3. PREDNISOLONE [Concomitant]
     Route: 048
     Dates: start: 20080501, end: 20080801
  4. PREDNISOLONE [Concomitant]
     Route: 048
     Dates: start: 20081201, end: 20090101
  5. HUMIRA [Suspect]
     Indication: RHEUMATOID ARTHRITIS
     Route: 058
     Dates: start: 20100714, end: 20100825
  6. PREDNISOLONE [Concomitant]
     Indication: RHEUMATOID ARTHRITIS
     Route: 048
     Dates: start: 20061201, end: 20080401
  7. BUCILLAMINE [Concomitant]
     Dates: start: 20080201, end: 20110101
  8. PREDNISOLONE [Concomitant]
     Route: 048
     Dates: start: 20080801, end: 20081001
  9. PREDNISOLONE [Concomitant]
     Route: 048
     Dates: start: 20081001, end: 20081201
  10. METHOTREXATE [Concomitant]
     Route: 048
     Dates: start: 20071101, end: 20110101
  11. PREDNISOLONE [Concomitant]
     Route: 048
     Dates: start: 20080401, end: 20080501
  12. METHOTREXATE [Concomitant]
     Indication: RHEUMATOID ARTHRITIS
     Dosage: 4 MG/WK
     Route: 048
     Dates: start: 20060101, end: 20071101

REACTIONS (8)
  - PANCREATIC CARCINOMA [None]
  - JAUNDICE CHOLESTATIC [None]
  - RASH [None]
  - MALAISE [None]
  - EYE PRURITUS [None]
  - GENERALISED OEDEMA [None]
  - METASTASES TO LIVER [None]
  - TERMINAL STATE [None]
